FAERS Safety Report 7982580-2 (Version None)
Quarter: 2011Q4

REPORT INFORMATION
  Report Type: 
  Country: None (occurrence: None)
  Receive Date: 20111215
  Receipt Date: 20111205
  Transmission Date: 20120403
  Serious: Yes (Hospitalization)
  Sender: FDA-Public Use
  Company Number: CA-GLAXOSMITHKLINE-A0931212A

PATIENT
  Sex: Female
  Weight: 77 kg

DRUGS (11)
  1. EFFEXOR [Concomitant]
     Indication: DEPRESSION
  2. SPIRIVA [Concomitant]
     Indication: PRODUCT USED FOR UNKNOWN INDICATION
     Route: 065
  3. LIPITOR [Concomitant]
  4. ADVAIR DISKUS 100/50 [Suspect]
     Indication: CHRONIC OBSTRUCTIVE PULMONARY DISEASE
     Dosage: 1PUFF TWICE PER DAY
     Route: 055
     Dates: start: 20110101
  5. ACID REFLUX MED. [Concomitant]
     Indication: GASTROOESOPHAGEAL REFLUX DISEASE
  6. MULTI-VITAMIN [Concomitant]
  7. ALTACE [Concomitant]
     Indication: BLOOD PRESSURE
  8. AGGRENOX [Concomitant]
  9. UNKNOWN STOMACH MEDICATION [Concomitant]
     Indication: ABDOMINAL DISCOMFORT
  10. VITAMIN D [Concomitant]
  11. SYNTHROID [Concomitant]

REACTIONS (12)
  - DYSPHONIA [None]
  - OROPHARYNGEAL PAIN [None]
  - HYPOKINESIA [None]
  - PALLOR [None]
  - DRY THROAT [None]
  - FALL [None]
  - DEHYDRATION [None]
  - COUGH [None]
  - HYPERHIDROSIS [None]
  - LYMPH NODE PAIN [None]
  - FATIGUE [None]
  - ODYNOPHAGIA [None]
